FAERS Safety Report 10235051 (Version 1)
Quarter: 2014Q2

REPORT INFORMATION
  Report Type: Report from Study
  Country: US (occurrence: US)
  Receive Date: 20140613
  Receipt Date: 20140613
  Transmission Date: 20141212
  Serious: No
  Sender: FDA-Public Use
  Company Number: PHEH2014US011829

PATIENT
  Age: 72 Year
  Sex: Male

DRUGS (9)
  1. TASIGNA [Suspect]
     Indication: CHRONIC MYELOID LEUKAEMIA
     Dosage: 300 MG, BID
     Route: 048
     Dates: start: 20140522, end: 20140528
  2. ATENOLOL [Concomitant]
     Dosage: UNK UKN, UNK
  3. LISINOPRIL [Concomitant]
     Dosage: UNK UKN, UNK
  4. AVODART [Concomitant]
     Dosage: UNK UKN, UNK
  5. ISOSORBIDE [Concomitant]
     Dosage: UNK UKN, UNK
  6. NIASPAN [Concomitant]
     Dosage: UNK UKN, UNK
  7. LIPITOR [Concomitant]
     Dosage: UNK UKN, UNK
  8. NEXIUM//ESOMEPRAZOLE SODIUM [Concomitant]
     Dosage: UNK UKN, UNK
  9. COUMADIN//WARFARIN SODIUM [Concomitant]
     Dosage: UNK UKN, UNK

REACTIONS (2)
  - Haemoglobin decreased [Recovered/Resolved]
  - Platelet count decreased [Recovered/Resolved]
